FAERS Safety Report 7756685-5 (Version None)
Quarter: 2011Q3

REPORT INFORMATION
  Report Type: 
  Country: None (occurrence: None)
  Receive Date: 20110915
  Receipt Date: 20110915
  Transmission Date: 20111222
  Serious: No
  Sender: FDA-Public Use
  Company Number: None

PATIENT
  Sex: Female
  Weight: 60.782 kg

DRUGS (2)
  1. SIMVASTATIN [Suspect]
     Dosage: 1 DAILY
  2. AMLODIPINE [Suspect]
     Dosage: 1 DAILY

REACTIONS (3)
  - MUSCLE DISORDER [None]
  - PAIN [None]
  - MOVEMENT DISORDER [None]
